FAERS Safety Report 8201699-4 (Version None)
Quarter: 2012Q1

REPORT INFORMATION
  Report Type: 
  Country: None (occurrence: None)
  Receive Date: 20120312
  Receipt Date: 20120307
  Transmission Date: 20120608
  Serious: Yes (Other)
  Sender: FDA-Public Use
  Company Number: BR-PFIZER INC-2012016355

PATIENT
  Age: 43 Year
  Sex: Female
  Weight: 72 kg

DRUGS (5)
  1. CLONAZEPAM [Concomitant]
     Indication: ANXIETY
  2. VARENICLINE TARTRATE [Suspect]
     Dosage: TWO TABLETS, DAILY
     Route: 048
  3. VARENICLINE TARTRATE [Suspect]
     Indication: SMOKING CESSATION THERAPY
     Dosage: UNK
     Route: 048
     Dates: start: 20111101
  4. CLONAZEPAM [Concomitant]
     Indication: PANIC DISORDER
     Dosage: UNK
     Dates: start: 20111001
  5. PHENOBARBITAL TAB [Concomitant]
     Indication: CONVULSION
     Dosage: UNK
     Dates: start: 20100101

REACTIONS (3)
  - HYPERTENSION [None]
  - DRUG INEFFECTIVE [None]
  - SOMNOLENCE [None]
